FAERS Safety Report 16204023 (Version 3)
Quarter: 2019Q2

REPORT INFORMATION
  Report Type: Spontaneous
  Country: US (occurrence: US)
  Receive Date: 20190416
  Receipt Date: 20190507
  Transmission Date: 20190711
  Serious: No
  Sender: FDA-Public Use
  Company Number: US-PFIZER INC-2019158426

PATIENT
  Age: 63 Year
  Sex: Male

DRUGS (1)
  1. EUCRISA [Suspect]
     Active Substance: CRISABOROLE
     Indication: ECZEMA
     Dosage: UNK, 2X/DAY [APPLY TO AFFECTED AREAS TWICE A DAY] [SMALL AMOUNT ON HIS FACE]
     Route: 061

REACTIONS (3)
  - Drug ineffective [Unknown]
  - Application site pain [Unknown]
  - Lacrimation increased [Unknown]
